FAERS Safety Report 9693826 (Version 1)
Quarter: 2013Q4

REPORT INFORMATION
  Report Type: Spontaneous
  Country: DE (occurrence: DE)
  Receive Date: 20131118
  Receipt Date: 20131118
  Transmission Date: 20140711
  Serious: Yes (Hospitalization)
  Sender: FDA-Public Use
  Company Number: PHHY2013DE130616

PATIENT
  Sex: Male

DRUGS (3)
  1. TEGRETAL [Suspect]
     Indication: EPILEPSY
     Dosage: 800 MG, DAILY
     Route: 048
     Dates: end: 2009
  2. TEGRETAL [Suspect]
     Dosage: 1200 MG, DAILY (CONCENTRATION 400 MG)
     Route: 048
     Dates: start: 2009
  3. PROPRANOLOL [Concomitant]
     Dosage: UNK UKN, UNK

REACTIONS (5)
  - Toxicity to various agents [Recovered/Resolved]
  - Visual impairment [Recovered/Resolved]
  - Tachycardia [Recovered/Resolved]
  - Anticonvulsant drug level increased [Unknown]
  - Overdose [Recovered/Resolved]
